FAERS Safety Report 9379726 (Version 1)
Quarter: 2013Q3

REPORT INFORMATION
  Report Type: Report from Study
  Country: KR (occurrence: KR)
  Receive Date: 20130702
  Receipt Date: 20130702
  Transmission Date: 20140515
  Serious: Yes (Hospitalization)
  Sender: FDA-Public Use
  Company Number: KR-JNJFOC-20130614320

PATIENT
  Age: 15 Year
  Sex: Male
  Weight: 65 kg

DRUGS (39)
  1. REMICADE [Suspect]
     Indication: CROHN^S DISEASE
     Route: 042
     Dates: start: 20120209
  2. REMICADE [Suspect]
     Indication: CROHN^S DISEASE
     Route: 042
     Dates: start: 201203, end: 20121101
  3. CALCORT [Concomitant]
     Indication: CROHN^S DISEASE
     Dosage: FREQUENCY: 3 TABLETS TWICE AND ALSO REPORTED AS 2 TABLET ONCE
     Route: 048
     Dates: start: 20120619, end: 20120625
  4. CALCORT [Concomitant]
     Indication: CROHN^S DISEASE
     Dosage: FREQUENCY: 4 TABLETS ONCE A DAY AND ALSO REPORTED AS 2 TABLETS THREE TIMES A DAY
     Route: 048
     Dates: start: 20120612, end: 20120618
  5. CALCORT [Concomitant]
     Indication: CROHN^S DISEASE
     Dosage: FREQUENCY: 2 TABLETS THREE TIMES
     Route: 048
     Dates: start: 20120626, end: 20120702
  6. PENTASA [Concomitant]
     Indication: CROHN^S DISEASE
     Dosage: FREQ: 2 TABLETS THREE TIMES
     Route: 048
  7. SOLONDO [Concomitant]
     Indication: CROHN^S DISEASE
     Dosage: FREQ: 4 TABLETS THREE TIMES
     Route: 048
     Dates: start: 20120605, end: 20120612
  8. SALOFALK [Concomitant]
     Indication: CROHN^S DISEASE
     Dosage: FREQ: 2 TABLETS THREE TIMES
     Route: 048
     Dates: start: 20120426
  9. SOLU-CORTEF [Concomitant]
     Indication: CROHN^S DISEASE
     Dosage: DOSE: 250MG/2ML
     Route: 042
     Dates: start: 20120209, end: 20120209
  10. SOLU-CORTEF [Concomitant]
     Indication: CROHN^S DISEASE
     Dosage: DOSE: 250MG/2ML
     Route: 042
     Dates: start: 20120313, end: 20120513
  11. SOLU-CORTEF [Concomitant]
     Indication: CROHN^S DISEASE
     Dosage: DOSE: 100MG/2ML
     Route: 042
     Dates: start: 20120507, end: 20120507
  12. BOLGRE [Concomitant]
     Indication: ANAEMIA PROPHYLAXIS
     Dosage: FREQUENCY 1
     Route: 048
     Dates: start: 20121004
  13. BOLGRE [Concomitant]
     Indication: ANAEMIA PROPHYLAXIS
     Dosage: FREQUENCY 2
     Route: 048
     Dates: start: 20120329, end: 20120703
  14. CEFOTAXIME SODIUM [Concomitant]
     Indication: PROPHYLAXIS
     Dosage: FREQ: 3
     Route: 042
     Dates: start: 20120311, end: 20120316
  15. CENTRUM NOS [Concomitant]
     Indication: GASTROINTESTINAL DISORDER THERAPY
     Route: 048
     Dates: start: 20120605
  16. CENTRUM NOS [Concomitant]
     Indication: GASTROINTESTINAL DISORDER THERAPY
     Dosage: FREQ: 3
     Route: 048
     Dates: start: 20120329, end: 20120712
  17. CENTRUM NOS [Concomitant]
     Indication: VITAMIN SUPPLEMENTATION
     Route: 048
     Dates: start: 20120605
  18. CENTRUM NOS [Concomitant]
     Indication: VITAMIN SUPPLEMENTATION
     Dosage: FREQ: 3
     Route: 048
     Dates: start: 20120329, end: 20120712
  19. DEXTROSE W/POTASSIUM CHLORIDE AND NACL [Concomitant]
     Indication: ELECTROLYTE SUBSTITUTION THERAPY
     Dosage: FREQUENCY: 2
     Route: 042
     Dates: start: 20120127, end: 20120310
  20. FLAGYL [Concomitant]
     Indication: INFECTION PROPHYLAXIS
     Dosage: FREQ: 3
     Route: 042
     Dates: start: 20120127, end: 20120315
  21. FLASINYL [Concomitant]
     Indication: INFECTION PROPHYLAXIS
     Dosage: FREQ: 3
     Route: 048
     Dates: start: 20120201, end: 20120425
  22. GLYCERINE [Concomitant]
     Dosage: FREQ: 3
     Route: 054
     Dates: start: 20120201, end: 20120425
  23. KETAMINE HYDROCHLORIDE [Concomitant]
     Indication: GENERAL ANAESTHESIA
     Dosage: FREQ: 1
     Route: 042
     Dates: start: 20120313, end: 20120313
  24. MIDAZOLAM [Concomitant]
     Indication: SEDATIVE THERAPY
     Dosage: FREQ: 1
     Route: 042
     Dates: start: 20120313, end: 20120313
  25. PENIRAMIN [Concomitant]
     Indication: ANTIALLERGIC THERAPY
     Dosage: FREQ: 1
     Route: 042
     Dates: start: 20120507, end: 20120507
  26. PENIRAMIN [Concomitant]
     Indication: ANTIALLERGIC THERAPY
     Dosage: FREQ: 1
     Route: 042
     Dates: start: 20121101, end: 20121101
  27. PENIRAMIN [Concomitant]
     Indication: ANTIALLERGIC THERAPY
     Dosage: FREQ: 1
     Route: 042
     Dates: start: 20120703, end: 20120703
  28. PENIRAMIN [Concomitant]
     Indication: ANTIALLERGIC THERAPY
     Dosage: FREQ: 1
     Route: 042
     Dates: start: 20120313, end: 20120313
  29. PENIRAMIN [Concomitant]
     Indication: ANTIALLERGIC THERAPY
     Dosage: FREQ: 1
     Route: 042
     Dates: start: 20120209, end: 20120209
  30. SMOFKABIVEN [Concomitant]
     Indication: NUTRITIONAL SUPPLEMENTATION
     Dosage: FREQ: 1
     Route: 042
     Dates: start: 20120311, end: 20120315
  31. TAMIPOOL [Concomitant]
     Indication: VITAMIN SUPPLEMENTATION
     Dosage: FREQ: 3
     Route: 042
     Dates: start: 20120311, end: 20120315
  32. TRAMADOL [Concomitant]
     Indication: ANALGESIC THERAPY
     Dosage: FREQ: 2 TABLETS 3 TIMES
     Route: 048
     Dates: start: 20120412, end: 20120418
  33. TRAMADOL [Concomitant]
     Indication: ANALGESIC THERAPY
     Dosage: FREQ: 2 TABLETS 3 TIMES
     Route: 048
     Dates: start: 20120507, end: 20120518
  34. TRAMADOL [Concomitant]
     Indication: ANALGESIC THERAPY
     Dosage: FREQ: 2 TABLETS 3 TIMES
     Route: 048
     Dates: start: 20120522, end: 20120703
  35. TRAMADOL [Concomitant]
     Indication: ANALGESIC THERAPY
     Dosage: FREQ: 2 TABLETS 3 TIMES
     Route: 048
     Dates: start: 20120326, end: 20120502
  36. TRAMADOL [Concomitant]
     Indication: ANTIPYRESIS
     Dosage: FREQ: 2 TABLETS 3 TIMES
     Route: 048
     Dates: start: 20120522, end: 20120703
  37. TRAMADOL [Concomitant]
     Indication: ANTIPYRESIS
     Dosage: FREQ: 2 TABLETS 3 TIMES
     Route: 048
     Dates: start: 20120326, end: 20120502
  38. TRAMADOL [Concomitant]
     Indication: ANTIPYRESIS
     Dosage: FREQ: 2 TABLETS 3 TIMES
     Route: 048
     Dates: start: 20120412, end: 20120418
  39. TRAMADOL [Concomitant]
     Indication: ANTIPYRESIS
     Dosage: FREQ: 2 TABLETS 3 TIMES
     Route: 048
     Dates: start: 20120507, end: 20120518

REACTIONS (1)
  - Crohn^s disease [Recovering/Resolving]
